FAERS Safety Report 19119894 (Version 7)
Quarter: 2025Q4

REPORT INFORMATION
  Report Type: Report from Study
  Country: CA (occurrence: CA)
  Receive Date: 20210412
  Receipt Date: 20251217
  Transmission Date: 20260117
  Serious: Yes (Other)
  Sender: CSL BEHRING
  Company Number: CA-BEH-2021130115

PATIENT
  Age: 63 Year
  Sex: Male
  Weight: 14.5 kg

DRUGS (31)
  1. HIZENTRA [Suspect]
     Active Substance: HUMAN IMMUNOGLOBULIN G
     Indication: Chronic inflammatory demyelinating polyradiculoneuropathy
     Dosage: 4 GRAM, QW (MAX 10ML PER SITE)
     Route: 058
     Dates: start: 20210324
  2. HIZENTRA [Suspect]
     Active Substance: HUMAN IMMUNOGLOBULIN G
     Dosage: UNK
     Route: 058
  3. HIZENTRA [Suspect]
     Active Substance: HUMAN IMMUNOGLOBULIN G
     Dosage: UNK
     Route: 058
  4. HIZENTRA [Suspect]
     Active Substance: HUMAN IMMUNOGLOBULIN G
     Dosage: 36 GRAM, QOW (Q2W)
     Route: 058
     Dates: start: 20210324
  5. HIZENTRA [Suspect]
     Active Substance: HUMAN IMMUNOGLOBULIN G
     Dosage: 36 GRAM, QW IN 2 DIVIDED DOSES
     Route: 058
     Dates: start: 20210324
  6. HIZENTRA [Suspect]
     Active Substance: HUMAN IMMUNOGLOBULIN G
     Dosage: UNK
     Route: 058
     Dates: start: 20210407
  7. HIZENTRA [Suspect]
     Active Substance: HUMAN IMMUNOGLOBULIN G
     Dosage: UNK
     Route: 058
     Dates: start: 20210414, end: 20210414
  8. HIZENTRA [Suspect]
     Active Substance: HUMAN IMMUNOGLOBULIN G
     Dosage: 36 GRAM, QW
     Route: 058
  9. HIZENTRA [Suspect]
     Active Substance: HUMAN IMMUNOGLOBULIN G
     Dosage: 36 GRAM, TOT
     Route: 058
     Dates: start: 20210421, end: 20210421
  10. HIZENTRA [Suspect]
     Active Substance: HUMAN IMMUNOGLOBULIN G
     Dosage: UNK UNK, TOT
     Route: 058
     Dates: start: 20210428, end: 20210428
  11. HIZENTRA [Suspect]
     Active Substance: HUMAN IMMUNOGLOBULIN G
     Dosage: 36 GRAM, BIW
     Route: 058
     Dates: start: 20210324
  12. HIZENTRA [Suspect]
     Active Substance: HUMAN IMMUNOGLOBULIN G
     Dosage: 48 G, QOW
     Route: 058
     Dates: start: 20210324
  13. HIZENTRA [Suspect]
     Active Substance: HUMAN IMMUNOGLOBULIN G
     Dosage: UNK
     Route: 058
  14. HIZENTRA [Suspect]
     Active Substance: HUMAN IMMUNOGLOBULIN G
     Dosage: UNK
     Route: 065
  15. HUMAN IMMUNOGLOBULIN G [Concomitant]
     Active Substance: HUMAN IMMUNOGLOBULIN G
     Route: 042
  16. VENTOLIN [Concomitant]
     Active Substance: ALBUTEROL SULFATE
  17. FUROSEMIDE [Concomitant]
     Active Substance: FUROSEMIDE
     Route: 065
  18. SENNOSIDES A AND B [Concomitant]
     Active Substance: SENNOSIDES A AND B
  19. SPIRONOLACTONE [Concomitant]
     Active Substance: SPIRONOLACTONE
  20. TAMSULOSIN [Concomitant]
     Active Substance: TAMSULOSIN
  21. CANDESARTAN [Concomitant]
     Active Substance: CANDESARTAN
  22. PANTOPRAZOLE [Concomitant]
     Active Substance: PANTOPRAZOLE
  23. BISOPROLOL FUMARATE [Concomitant]
     Active Substance: BISOPROLOL FUMARATE
  24. ASPIRIN [Concomitant]
     Active Substance: ASPIRIN
  25. DORZOLAMIDE [Concomitant]
     Active Substance: DORZOLAMIDE
  26. ALLOPURINOL [Concomitant]
     Active Substance: ALLOPURINOL
  27. GABAPENTIN [Concomitant]
     Active Substance: GABAPENTIN
  28. METFORMIN [Concomitant]
     Active Substance: METFORMIN HYDROCHLORIDE
  29. ROSUVASTATIN [Concomitant]
     Active Substance: ROSUVASTATIN
  30. OXYCODONE [Concomitant]
     Active Substance: OXYCODONE
  31. OZEMPIC [Concomitant]
     Active Substance: SEMAGLUTIDE
     Dosage: UNK

REACTIONS (40)
  - Dyspnoea [Recovered/Resolved]
  - Anxiety [Recovered/Resolved]
  - Injection site pruritus [Recovered/Resolved]
  - Hypoaesthesia [Recovered/Resolved]
  - Contusion [Unknown]
  - Scar [Unknown]
  - Hypoaesthesia [Unknown]
  - Fine motor skill dysfunction [Unknown]
  - Chest pain [Recovered/Resolved]
  - Dysphagia [Recovered/Resolved]
  - Gastrooesophageal reflux disease [Recovered/Resolved]
  - Dyspnoea [Recovered/Resolved]
  - Dyspnoea [Unknown]
  - Respiratory rate decreased [Unknown]
  - Dyspnoea [Recovered/Resolved]
  - Pain in extremity [Unknown]
  - Dyspnoea [Unknown]
  - Anxiety [Unknown]
  - Stress [Unknown]
  - Abdominal pain lower [Recovered/Resolved]
  - Dyspnoea [Unknown]
  - Panic attack [Unknown]
  - Infusion site pain [Unknown]
  - Infusion site pruritus [Recovered/Resolved]
  - Abdominal discomfort [Unknown]
  - Vomiting [Unknown]
  - Nausea [Unknown]
  - Therapy change [Unknown]
  - Therapy change [Unknown]
  - Therapy change [Unknown]
  - Chronic inflammatory demyelinating polyradiculoneuropathy [Unknown]
  - Pain in extremity [Unknown]
  - Nausea [Unknown]
  - Abdominal pain [Unknown]
  - Headache [Unknown]
  - Injection site haemorrhage [Unknown]
  - Wound [Unknown]
  - Electric shock sensation [Unknown]
  - Insomnia [Unknown]
  - Headache [Unknown]

NARRATIVE: CASE EVENT DATE: 20210401
